FAERS Safety Report 6484644-1 (Version None)
Quarter: 2009Q4

REPORT INFORMATION
  Report Type: 
  Country: None (occurrence: None)
  Receive Date: 20091209
  Receipt Date: 20090530
  Transmission Date: 20100525
  Serious: No
  Sender: FDA-Public Use
  Company Number: US-AMGEN-KDL349461

PATIENT
  Sex: Female

DRUGS (2)
  1. ENBREL [Suspect]
     Indication: RHEUMATOID ARTHRITIS
     Route: 058
  2. ENBREL [Suspect]
     Indication: SJOGREN'S SYNDROME

REACTIONS (11)
  - CONTUSION [None]
  - DENTAL CARIES [None]
  - DRY EYE [None]
  - DRY MOUTH [None]
  - ERYTHEMA [None]
  - GINGIVAL INFECTION [None]
  - NASOPHARYNGITIS [None]
  - PURULENT DISCHARGE [None]
  - RHEUMATOID ARTHRITIS [None]
  - SKIN LACERATION [None]
  - TOOTH INFECTION [None]
